FAERS Safety Report 21348703 (Version 2)
Quarter: 2023Q1

REPORT INFORMATION
  Report Type: Spontaneous
  Country: RO (occurrence: RO)
  Receive Date: 20220919
  Receipt Date: 20230118
  Transmission Date: 20230417
  Serious: Yes (Hospitalization, Other)
  Sender: FDA-Public Use
  Company Number: RO-ASTELLAS-2022US032734

PATIENT
  Age: 70 Year
  Sex: Male

DRUGS (6)
  1. XOSPATA [Suspect]
     Active Substance: GILTERITINIB
     Indication: Acute myelomonocytic leukaemia
     Dosage: 120 MG, ONCE DAILY (3 CP/DAY)
     Route: 065
     Dates: start: 20220630, end: 20220707
  2. XOSPATA [Suspect]
     Active Substance: GILTERITINIB
     Dosage: 80 MG, ONCE DAILY (2 CP/DAY )
     Route: 065
     Dates: start: 20220727, end: 20220808
  3. XOSPATA [Suspect]
     Active Substance: GILTERITINIB
     Route: 065
     Dates: start: 20220830, end: 20220907
  4. XOSPATA [Suspect]
     Active Substance: GILTERITINIB
     Route: 065
     Dates: start: 20220914, end: 20221106
  5. XOSPATA [Suspect]
     Active Substance: GILTERITINIB
     Dosage: 80 MG, ONCE DAILY (29-NOV-2022- 16-DEC-2022- 2 DAYS YES AND 2 DAYS NO)
     Route: 065
     Dates: start: 20221129, end: 20221216
  6. XOSPATA [Suspect]
     Active Substance: GILTERITINIB
     Dosage: 80 MG, ONCE DAILY (80 MG/DAY 2 DAYS YES, 3 DAYS NO)
     Route: 065
     Dates: start: 20230112

REACTIONS (9)
  - Haematotoxicity [Recovering/Resolving]
  - Pancytopenia [Recovering/Resolving]
  - Thrombocytopenia [Recovering/Resolving]
  - Anaemia [Recovering/Resolving]
  - Hepatic cytolysis [Recovering/Resolving]
  - Serum ferritin increased [Unknown]
  - Hepatosplenomegaly [Unknown]
  - Asthenia [Unknown]
  - Off label use [Unknown]

NARRATIVE: CASE EVENT DATE: 20220914
